FAERS Safety Report 14531637 (Version 1)
Quarter: 2018Q1

REPORT INFORMATION
  Report Type: Report from Study
  Country: AU (occurrence: AU)
  Receive Date: 20180214
  Receipt Date: 20180214
  Transmission Date: 20180509
  Serious: Yes (Hospitalization, Other)
  Sender: FDA-Public Use
  Company Number: AU-MYLANLABS-2017M1054200

PATIENT
  Age: 29 Year
  Sex: Male
  Weight: 108 kg

DRUGS (4)
  1. CLOZARIL [Suspect]
     Active Substance: CLOZAPINE
     Indication: SCHIZOPHRENIA
     Dosage: UNK
     Dates: start: 2012, end: 20120703
  2. CLOZARIL [Suspect]
     Active Substance: CLOZAPINE
     Dosage: UNK
     Dates: start: 2012
  3. CLOZARIL [Suspect]
     Active Substance: CLOZAPINE
     Dosage: 375 MG, UNK
     Route: 048
     Dates: start: 20170825
  4. CLOZARIL [Suspect]
     Active Substance: CLOZAPINE
     Indication: SCHIZOAFFECTIVE DISORDER
     Dosage: 200 MG, QD
     Dates: start: 20050422, end: 20120614

REACTIONS (9)
  - Blood triglycerides increased [Recovered/Resolved]
  - Ejection fraction abnormal [Recovered/Resolved]
  - Overdose [Unknown]
  - Congestive cardiomyopathy [Recovering/Resolving]
  - Schizophrenia [Unknown]
  - Hyperlipidaemia [Unknown]
  - Diabetes mellitus [Unknown]
  - Waist circumference increased [Unknown]
  - Blood alkaline phosphatase decreased [Recovered/Resolved]

NARRATIVE: CASE EVENT DATE: 201003
